FAERS Safety Report 24360923 (Version 2)
Quarter: 2024Q4

REPORT INFORMATION
  Report Type: Spontaneous
  Country: US (occurrence: US)
  Receive Date: 20240925
  Receipt Date: 20241029
  Transmission Date: 20250114
  Serious: Yes (Hospitalization, Other)
  Sender: DOMPE FARMACEUTICI
  Company Number: US-FARMAPROD-202408-3008

PATIENT
  Age: 75 Year
  Sex: Female

DRUGS (33)
  1. OXERVATE [Suspect]
     Active Substance: CENEGERMIN-BKBJ
     Indication: Ulcerative keratitis
     Route: 047
     Dates: start: 20240807
  2. OXERVATE [Suspect]
     Active Substance: CENEGERMIN-BKBJ
     Indication: Neurotrophic keratopathy
  3. REFRESH CLASSIC [Concomitant]
     Active Substance: POLYVINYL ALCOHOL\POVIDONE
  4. SYSTANE ULTRA [Concomitant]
     Active Substance: POLYETHYLENE GLYCOL 400\PROPYLENE GLYCOL
  5. SYSTANE COMPLETE [Concomitant]
     Active Substance: PROPYLENE GLYCOL
  6. COENZYME Q10 [Concomitant]
     Active Substance: DIETARY SUPPLEMENT\UBIDECARENONE
  7. VITAMIN E [Concomitant]
     Active Substance: .ALPHA.-TOCOPHEROL
  8. WHOLE BLOOD [Concomitant]
     Active Substance: WHOLE BLOOD
  9. STOOL SOFTNER [Concomitant]
  10. VITAMINS [Concomitant]
     Active Substance: VITAMINS
  11. CALCIUM [Concomitant]
     Active Substance: CALCIUM
  12. MAGNESIUM [Concomitant]
     Active Substance: MAGNESIUM
  13. IRON [Concomitant]
     Active Substance: IRON
  14. VITAMIN B12 [Concomitant]
     Active Substance: CYANOCOBALAMIN
  15. VITAMIN C [Concomitant]
     Active Substance: ASCORBIC ACID
  16. FISH OIL [Concomitant]
     Active Substance: FISH OIL
  17. VITAMIN D3 [Concomitant]
     Active Substance: CHOLECALCIFEROL
  18. INFLIXIMAB [Concomitant]
     Active Substance: INFLIXIMAB
  19. ELIQUIS [Concomitant]
     Active Substance: APIXABAN
  20. FML [Concomitant]
     Active Substance: FLUOROMETHOLONE
  21. BRINZOLAMIDE [Concomitant]
     Active Substance: BRINZOLAMIDE
  22. BRIMONIDINE TARTRATE [Concomitant]
     Active Substance: BRIMONIDINE TARTRATE
  23. MOXIFLOXACIN [Concomitant]
     Active Substance: MOXIFLOXACIN
  24. METOPROLOL SUCCINATE [Concomitant]
     Active Substance: METOPROLOL SUCCINATE
  25. ESOMEPRAZOLE MAGNESIUM [Concomitant]
     Active Substance: ESOMEPRAZOLE MAGNESIUM
  26. TORSEMIDE [Concomitant]
     Active Substance: TORSEMIDE
  27. LEVOTHYROXINE SODIUM [Concomitant]
     Active Substance: LEVOTHYROXINE SODIUM
  28. POTASSIUM CHLORIDE [Concomitant]
     Active Substance: POTASSIUM CHLORIDE
  29. MYCOPHENOLATE MOFETIL [Concomitant]
     Active Substance: MYCOPHENOLATE MOFETIL
  30. LISINOPRIL [Concomitant]
     Active Substance: LISINOPRIL
  31. JARDIANCE [Concomitant]
     Active Substance: EMPAGLIFLOZIN
  32. LIPITOR [Concomitant]
     Active Substance: ATORVASTATIN CALCIUM
  33. PLAVIX [Concomitant]
     Active Substance: CLOPIDOGREL BISULFATE

REACTIONS (6)
  - Myocardial infarction [Recovered/Resolved]
  - Faecaloma [Recovered/Resolved]
  - Cerebrovascular accident [Recovered/Resolved]
  - Eye irritation [Unknown]
  - Eye pain [Unknown]
  - Pain [Unknown]

NARRATIVE: CASE EVENT DATE: 20240909
